FAERS Safety Report 14961931 (Version 1)
Quarter: 2018Q2

REPORT INFORMATION
  Report Type: Spontaneous
  Country: RU (occurrence: RU)
  Receive Date: 20180601
  Receipt Date: 20180601
  Transmission Date: 20180711
  Serious: Yes (Other)
  Sender: FDA-Public Use
  Company Number: RU-ASTRAZENECA-2018SE70832

PATIENT
  Age: 71 Year
  Sex: Male
  Weight: 70 kg

DRUGS (12)
  1. MORPHINE [Concomitant]
     Active Substance: MORPHINE
     Indication: MYOCARDIAL INFARCTION
  2. HEPARIN SODIUM. [Concomitant]
     Active Substance: HEPARIN SODIUM
     Indication: MYOCARDIAL INFARCTION
  3. ULTRAVIST [Concomitant]
     Active Substance: IOPROMIDE
  4. ACETYLSALICYLIC ACID [Concomitant]
     Active Substance: ASPIRIN
     Indication: CARDIOGENIC SHOCK
  5. DOFAMIUM [Concomitant]
     Indication: CARDIOGENIC SHOCK
  6. BRILINTA [Suspect]
     Active Substance: TICAGRELOR
     Indication: CARDIOGENIC SHOCK
     Dosage: 90.0MG UNKNOWN
     Route: 048
     Dates: start: 20180301
  7. BRILINTA [Suspect]
     Active Substance: TICAGRELOR
     Indication: MYOCARDIAL INFARCTION
     Dosage: 90.0MG UNKNOWN
     Route: 048
     Dates: start: 20180301
  8. NAROPIN [Concomitant]
     Active Substance: ROPIVACAINE HYDROCHLORIDE
  9. ACETYLSALICYLIC ACID [Concomitant]
     Active Substance: ASPIRIN
     Indication: MYOCARDIAL INFARCTION
  10. MORPHINE [Concomitant]
     Active Substance: MORPHINE
     Indication: CARDIOGENIC SHOCK
  11. HEPARIN SODIUM. [Concomitant]
     Active Substance: HEPARIN SODIUM
     Indication: CARDIOGENIC SHOCK
  12. DOFAMIUM [Concomitant]
     Indication: MYOCARDIAL INFARCTION

REACTIONS (3)
  - Tremor [Unknown]
  - Erythema [Unknown]
  - Muscle spasms [Unknown]

NARRATIVE: CASE EVENT DATE: 20180301
